FAERS Safety Report 5483533-9 (Version None)
Quarter: 2007Q4

REPORT INFORMATION
  Report Type: 
  Country: None (occurrence: None)
  Receive Date: 20071009
  Receipt Date: 20071002
  Transmission Date: 20080405
  Serious: Yes (Hospitalization)
  Sender: FDA-Public Use
  Company Number: US021033

PATIENT
  Age: 69 Year
  Sex: Female

DRUGS (6)
  1. PROVIGIL [Suspect]
     Indication: SOMNOLENCE
     Dosage: 100 MG QD ORAL
     Route: 048
     Dates: start: 20040601
  2. CYMBALTA [Concomitant]
  3. DIOVAN [Concomitant]
  4. ACTONEL [Concomitant]
  5. PREMPRO [Concomitant]
  6. DARVOCET [Concomitant]

REACTIONS (11)
  - AMNESIA [None]
  - CEREBRAL HAEMORRHAGE [None]
  - CONFUSIONAL STATE [None]
  - DIZZINESS [None]
  - FEELING ABNORMAL [None]
  - HEAD INJURY [None]
  - HEADACHE [None]
  - JOINT INJURY [None]
  - LOSS OF CONSCIOUSNESS [None]
  - MULTIPLE INJURIES [None]
  - SUBDURAL HAEMATOMA [None]
